FAERS Safety Report 8904343 (Version 3)
Quarter: 2013Q1

REPORT INFORMATION
  Report Type: Spontaneous
  Country: BR (occurrence: BR)
  Receive Date: 20121112
  Receipt Date: 20130221
  Transmission Date: 20140127
  Serious: Yes (Hospitalization, Other)
  Sender: FDA-Public Use
  Company Number: BR-ABBOTT-12P-020-1004512-00

PATIENT
  Sex: Female
  Weight: 48 kg

DRUGS (3)
  1. DEPAKENE [Suspect]
     Indication: CONVULSION
     Dosage: THREE UNSPECIFIED DOSES PER DAY
     Dates: start: 1999
  2. TEGRETOL [Suspect]
     Indication: PRODUCT USED FOR UNKNOWN INDICATION
     Dates: start: 201201
  3. PHENOBARBITAL [Suspect]
     Indication: CONVULSION
     Dates: start: 201301

REACTIONS (16)
  - Abnormal behaviour [Recovering/Resolving]
  - Hallucination, auditory [Recovering/Resolving]
  - Convulsion [Unknown]
  - Convulsion [Unknown]
  - Convulsion [Unknown]
  - Convulsion [Unknown]
  - Hypersomnia [Unknown]
  - Oral herpes [Unknown]
  - Liver disorder [Recovering/Resolving]
  - Respiratory tract infection [Recovered/Resolved]
  - Feeding tube complication [Recovered/Resolved]
  - Necrosis [Unknown]
  - Musculoskeletal stiffness [Unknown]
  - Skin discolouration [Unknown]
  - Immunodeficiency [Unknown]
  - Gait disturbance [Recovering/Resolving]
